FAERS Safety Report 9374928 (Version 1)
Quarter: 2013Q2

REPORT INFORMATION
  Report Type: Spontaneous
  Country: US (occurrence: US)
  Receive Date: 20130628
  Receipt Date: 20130628
  Transmission Date: 20140414
  Serious: Yes (Other)
  Sender: FDA-Public Use
  Company Number: US-FRI-1000046070

PATIENT
  Sex: Female
  Weight: 74.8 kg

DRUGS (2)
  1. ARMOUR THYROID [Suspect]
     Indication: AUTOIMMUNE THYROIDITIS
  2. ARMOUR THYROID [Suspect]
     Indication: THYROID DISORDER

REACTIONS (10)
  - Palpitations [Unknown]
  - Weight increased [Unknown]
  - Alopecia [Unknown]
  - Unevaluable event [Unknown]
  - Cold sweat [Unknown]
  - Pyrexia [Unknown]
  - Headache [Unknown]
  - Lethargy [Unknown]
  - Depression [Unknown]
  - Drug ineffective [Unknown]
